FAERS Safety Report 5386736-7 (Version None)
Quarter: 2007Q3

REPORT INFORMATION
  Report Type: 
  Country: None (occurrence: None)
  Receive Date: 20070713
  Receipt Date: 20070702
  Transmission Date: 20080115
  Serious: No
  Sender: FDA-Public Use
  Company Number: PL-BAXTER-2007BH006021

PATIENT

DRUGS (2)
  1. DEXTROSE 5% [Suspect]
     Indication: DRUG USE FOR UNKNOWN INDICATION
     Route: 042
     Dates: start: 20070624, end: 20070624
  2. SOLU-MEDROL [Concomitant]

REACTIONS (4)
  - BLOOD PRESSURE DECREASED [None]
  - CHILLS [None]
  - PYREXIA [None]
  - TACHYCARDIA [None]
